FAERS Safety Report 24606891 (Version 2)
Quarter: 2024Q4

REPORT INFORMATION
  Report Type: Spontaneous
  Country: CN (occurrence: CN)
  Receive Date: 20241112
  Receipt Date: 20241122
  Transmission Date: 20250115
  Serious: Yes (Death, Life-Threatening, Hospitalization, Other)
  Sender: ALKEM
  Company Number: None

PATIENT
  Age: 13 Day
  Sex: Male
  Weight: 3.56 kg

DRUGS (2)
  1. LINEZOLID [Suspect]
     Active Substance: LINEZOLID
     Indication: Staphylococcal infection
     Dosage: 35 MILLIGRAM, TID (EVERY 8 HOUR)
     Route: 042
  2. VITAMIN A D [Concomitant]
     Indication: Product used for unknown indication
     Dosage: UNK, QD (1500 IU:500 IU (INTERNATIONAL UNIT)
     Route: 065

REACTIONS (9)
  - Cardiac arrest neonatal [Fatal]
  - Hypoxic ischaemic encephalopathy neonatal [Fatal]
  - Lactic acidosis [Fatal]
  - Multiple organ dysfunction syndrome [Fatal]
  - Myocardial injury [Fatal]
  - Necrotising enterocolitis neonatal [Fatal]
  - Neonatal respiratory acidosis [Fatal]
  - Neonatal respiratory arrest [Fatal]
  - Condition aggravated [Fatal]
